FAERS Safety Report 7218032-7 (Version None)
Quarter: 2011Q1

REPORT INFORMATION
  Report Type: 
  Country: None (occurrence: None)
  Receive Date: 20110110
  Receipt Date: 20110104
  Transmission Date: 20110831
  Serious: Yes (Death, Hospitalization, Other)
  Sender: FDA-Public Use
  Company Number: US-CELGENEUS-163-20785-10122180

PATIENT
  Sex: Male
  Weight: 59.9 kg

DRUGS (22)
  1. FLOMAX [Concomitant]
     Route: 048
  2. LOPID [Concomitant]
     Route: 048
  3. KEPPRA [Concomitant]
     Dosage: 5ML
     Route: 048
  4. PHENERGAN [Concomitant]
     Indication: NAUSEA
     Dosage: 0.25ML-5ML
     Route: 030
  5. LIDODERM [Concomitant]
     Route: 061
  6. OXYCODONE [Concomitant]
     Route: 048
  7. CATAPRES [Concomitant]
     Indication: BLOOD PRESSURE
     Route: 048
  8. COLACE [Concomitant]
     Indication: CONSTIPATION
     Route: 048
  9. PROTONIX [Concomitant]
     Route: 048
  10. MIRALAX [Concomitant]
     Route: 048
  11. ALLOPURINOL [Concomitant]
     Route: 048
  12. NEPHROCAPS [Concomitant]
     Route: 048
  13. FOLIC ACID [Concomitant]
     Route: 048
  14. DULCOLAX [Concomitant]
     Indication: CONSTIPATION
     Route: 054
  15. THALOMID [Suspect]
     Indication: MULTIPLE MYELOMA
     Route: 048
     Dates: start: 20100901
  16. TYLENOL [Concomitant]
     Indication: PAIN
     Route: 048
  17. VITAMIN B-12 [Concomitant]
     Route: 058
  18. HYDRALAZINE [Concomitant]
     Route: 048
  19. RENVELA [Concomitant]
     Route: 048
  20. PHENERGAN [Concomitant]
     Indication: VOMITING
  21. NIFEDIPINE [Concomitant]
     Route: 048
  22. LOPRESSOR [Concomitant]
     Route: 048

REACTIONS (1)
  - HAEMORRHAGIC STROKE [None]
